FAERS Safety Report 7713692-6 (Version None)
Quarter: 2011Q3

REPORT INFORMATION
  Report Type: 
  Country: None (occurrence: None)
  Receive Date: 20110826
  Receipt Date: 20110817
  Transmission Date: 20111222
  Serious: Yes (Other)
  Sender: FDA-Public Use
  Company Number: GB-ASTRAZENECA-2011SE49271

PATIENT
  Sex: Male

DRUGS (3)
  1. LISINOPRIL [Suspect]
     Route: 048
  2. ABILIFY [Interacting]
     Route: 065
  3. DOXAZOSIN MESYLATE [Interacting]
     Route: 065

REACTIONS (2)
  - DRUG INTERACTION [None]
  - HAEMODIALYSIS [None]
